FAERS Safety Report 9586298 (Version 1)
Quarter: 2013Q4

REPORT INFORMATION
  Report Type: Spontaneous
  Country: US (occurrence: None)
  Receive Date: 20131001
  Receipt Date: 20131001
  Transmission Date: 20140711
  Serious: Yes (Hospitalization)
  Sender: FDA-Public Use
  Company Number: 2013US002524

PATIENT
  Sex: 0

DRUGS (1)
  1. ICLUSIG [Suspect]
     Route: 048

REACTIONS (1)
  - Blood thyroid stimulating hormone decreased [None]
